FAERS Safety Report 24837157 (Version 1)
Quarter: 2025Q1

REPORT INFORMATION
  Report Type: Spontaneous
  Country: BE (occurrence: BE)
  Receive Date: 20250113
  Receipt Date: 20250113
  Transmission Date: 20250409
  Serious: Yes (Hospitalization, Other)
  Sender: AUROBINDO
  Company Number: BE-ABBVIE-6029235

PATIENT
  Age: 53 Year
  Sex: Male
  Weight: 62 kg

DRUGS (4)
  1. ACETAMINOPHEN [Suspect]
     Active Substance: ACETAMINOPHEN
     Indication: Gastrointestinal disorder
     Route: 048
     Dates: start: 2024, end: 20241125
  2. SULFAMETHOXAZOLE\TRIMETHOPRIM [Suspect]
     Active Substance: SULFAMETHOXAZOLE\TRIMETHOPRIM
     Indication: Antifungal prophylaxis
     Route: 048
     Dates: start: 20241030, end: 20241125
  3. RINVOQ [Suspect]
     Active Substance: UPADACITINIB
     Indication: Colitis ulcerative
     Dosage: 45 MILLIGRAM, ONCE A DAY
     Route: 048
     Dates: start: 20241105, end: 20241125
  4. RINVOQ [Suspect]
     Active Substance: UPADACITINIB
     Dosage: 30 MILLIGRAM, ONCE A DAY
     Route: 048
     Dates: start: 20241212

REACTIONS (5)
  - Liver function test increased [Recovered/Resolved]
  - Hepatitis toxic [Recovered/Resolved]
  - Colitis ulcerative [Unknown]
  - HIV infection [Unknown]
  - Multimorbidity [Unknown]

NARRATIVE: CASE EVENT DATE: 20240101
